FAERS Safety Report 8301369 (Version 2)
Quarter: 2018Q4

REPORT INFORMATION
  Report Type: Spontaneous
  Country: SE (occurrence: SE)
  Receive Date: 20111219
  Receipt Date: 20181120
  Transmission Date: 20190205
  Serious: Yes (Hospitalization, Other)
  Sender: FDA-Public Use
  Company Number: SE-ASTRAZENECA-2011SE67957

PATIENT
  Age: 22 Year
  Sex: Female

DRUGS (4)
  1. LERGIGAN [Concomitant]
     Route: 048
  2. POSTAFEN [Concomitant]
     Active Substance: BUCLIZINE HYDROCHLORIDE
     Route: 048
  3. FURADANTIN [Concomitant]
     Active Substance: NITROFURANTOIN
     Route: 048
  4. MERONEM [Suspect]
     Active Substance: MEROPENEM
     Indication: BACTERIAL PYELONEPHRITIS
     Dosage: 500.0MG ONCE/SINGLE ADMINISTRATION
     Route: 042
     Dates: start: 20111025, end: 20111025

REACTIONS (6)
  - Nausea [Recovered/Resolved]
  - Syncope [Recovered/Resolved]
  - Chest pain [Recovered/Resolved]
  - Dyspnoea [Recovered/Resolved]
  - Exposure during pregnancy [Unknown]
  - Angioedema [Recovered/Resolved]

NARRATIVE: CASE EVENT DATE: 20111025
